FAERS Safety Report 13028875 (Version 1)
Quarter: 2016Q4

REPORT INFORMATION
  Report Type: Spontaneous
  Country: FR (occurrence: FR)
  Receive Date: 20161214
  Receipt Date: 20161214
  Transmission Date: 20170207
  Serious: Yes (Death, Hospitalization, Other)
  Sender: FDA-Public Use
  Company Number: FR-BAXTER-2016BAX061293

PATIENT
  Age: 58 Year
  Sex: Male

DRUGS (12)
  1. ROVAMYCIN [Suspect]
     Active Substance: SPIRAMYCIN
     Indication: ADVERSE EVENT
     Route: 065
     Dates: start: 201610
  2. GLYPRESSINE [Suspect]
     Active Substance: TERLIPRESSIN
     Indication: ADVERSE EVENT
     Route: 042
     Dates: start: 201610
  3. ADRENALIN [Suspect]
     Active Substance: EPINEPHRINE
     Indication: ADVERSE EVENT
     Dosage: 2 BOLUS
     Route: 040
     Dates: start: 201610
  4. ENDOXAN 1000 MG, POUDRE POUR SOLUTION INJECTABLE [Suspect]
     Active Substance: CYCLOPHOSPHAMIDE
     Route: 042
     Dates: start: 20160922, end: 20160922
  5. AUGMENTIN [Suspect]
     Active Substance: AMOXICILLIN\CLAVULANATE POTASSIUM
     Indication: BRONCHITIS
     Route: 065
     Dates: start: 201610
  6. ENDOXAN 1000 MG, POUDRE POUR SOLUTION INJECTABLE [Suspect]
     Active Substance: CYCLOPHOSPHAMIDE
     Indication: PRODUCT USED FOR UNKNOWN INDICATION
     Route: 042
     Dates: start: 20160706, end: 20160706
  7. ENDOXAN 1000 MG, POUDRE POUR SOLUTION INJECTABLE [Suspect]
     Active Substance: CYCLOPHOSPHAMIDE
     Dosage: 5TH COURSE OF ENDOXAN
     Route: 042
     Dates: start: 20161011, end: 20161011
  8. AMIKLIN [Suspect]
     Active Substance: AMIKACIN SULFATE
     Indication: ADVERSE EVENT
     Route: 065
     Dates: start: 201610
  9. ENDOXAN 1000 MG, POUDRE POUR SOLUTION INJECTABLE [Suspect]
     Active Substance: CYCLOPHOSPHAMIDE
     Route: 042
     Dates: start: 20160808, end: 20160808
  10. BACTRIM [Suspect]
     Active Substance: SULFAMETHOXAZOLE\TRIMETHOPRIM
     Indication: ADVERSE EVENT
     Route: 065
     Dates: start: 201610
  11. ENDOXAN 1000 MG, POUDRE POUR SOLUTION INJECTABLE [Suspect]
     Active Substance: CYCLOPHOSPHAMIDE
     Route: 042
     Dates: start: 20160721, end: 20160721
  12. TIENAM [Suspect]
     Active Substance: CILASTATIN SODIUM\IMIPENEM
     Indication: ADVERSE EVENT
     Route: 065
     Dates: start: 201610

REACTIONS (7)
  - Thrombosis [Unknown]
  - Haemoptysis [Unknown]
  - Hypoxia [Unknown]
  - Cardiac arrest [Unknown]
  - Bronchitis [Recovering/Resolving]
  - Acute respiratory distress syndrome [Unknown]
  - Death [Fatal]

NARRATIVE: CASE EVENT DATE: 201610
